FAERS Safety Report 8557424-0 (Version None)
Quarter: 2012Q3

REPORT INFORMATION
  Report Type: 
  Country: None (occurrence: None)
  Receive Date: 20120801
  Receipt Date: 20120723
  Transmission Date: 20120928
  Serious: Yes (Other)
  Sender: FDA-Public Use
  Company Number: US-ELI_LILLY_AND_COMPANY-US201207008055

PATIENT

DRUGS (2)
  1. THERAPEUTIC RADIOPHARMACEUTICALS [Concomitant]
     Dosage: UNK UNK, OTHER
  2. GEMCITABINE HYDROCHLORIDE [Suspect]
     Indication: NEOPLASM MALIGNANT
     Dosage: UNK

REACTIONS (2)
  - RECALL PHENOMENON [None]
  - OESOPHAGEAL FISTULA [None]
